FAERS Safety Report 6763256-6 (Version None)
Quarter: 2010Q2

REPORT INFORMATION
  Report Type: 
  Country: None (occurrence: None)
  Receive Date: 20100610
  Receipt Date: 20100527
  Transmission Date: 20101027
  Serious: Yes (Hospitalization)
  Sender: FDA-Public Use
  Company Number: PL-RANBAXY-2010RR-34332

PATIENT
  Age: 54 Year
  Sex: Female

DRUGS (2)
  1. AMOXICILLIN [Suspect]
     Indication: BRONCHITIS
  2. CIPROFLOXACIN [Concomitant]
     Indication: URINARY TRACT INFECTION

REACTIONS (1)
  - OVERLAP SYNDROME [None]
